FAERS Safety Report 4749899-X (Version None)
Quarter: 2005Q3

REPORT INFORMATION
  Report Type: 
  Country: None (occurrence: None)
  Receive Date: 20050822
  Receipt Date: 20050812
  Transmission Date: 20060218
  Serious: Yes (Death)
  Sender: FDA-Public Use
  Company Number: JP-ABBOTT-05P-087-0308412-00

PATIENT
  Age: 79 Year
  Sex: Female
  Weight: 45 kg

DRUGS (4)
  1. CLARITHROMYCIN [Suspect]
     Indication: HELICOBACTER INFECTION
     Route: 048
     Dates: start: 20040608, end: 20040614
  2. AMOXICILLIN [Interacting]
     Indication: HELICOBACTER INFECTION
     Route: 048
     Dates: start: 20040608, end: 20040614
  3. LANSOPRAZOLE [Suspect]
     Indication: HELICOBACTER INFECTION
     Route: 048
     Dates: start: 20040608, end: 20040614
  4. LANSOPRAZOLE [Suspect]
     Indication: GASTRITIS EROSIVE
     Route: 048
     Dates: start: 20040615, end: 20040625

REACTIONS (9)
  - ACIDOSIS [None]
  - BLOOD PRESSURE DECREASED [None]
  - DEPRESSED LEVEL OF CONSCIOUSNESS [None]
  - HAEMOLYTIC ANAEMIA [None]
  - PNEUMONIA [None]
  - PYREXIA [None]
  - RESPIRATORY DISORDER [None]
  - SEPSIS [None]
  - THROMBOCYTOPENIC PURPURA [None]
